FAERS Safety Report 9344025 (Version 3)
Quarter: 2013Q3

REPORT INFORMATION
  Report Type: Spontaneous
  Country: RO (occurrence: RO)
  Receive Date: 20130612
  Receipt Date: 20130704
  Transmission Date: 20140515
  Serious: Yes (Hospitalization)
  Sender: FDA-Public Use
  Company Number: RO-BRISTOL-MYERS SQUIBB COMPANY-18984146

PATIENT
  Age: 57 Year
  Sex: Male
  Weight: 94 kg

DRUGS (5)
  1. BYDUREON [Suspect]
     Indication: TYPE 2 DIABETES MELLITUS
     Route: 058
     Dates: start: 20121214, end: 20130501
  2. METFORMIN HCL [Suspect]
     Indication: TYPE 2 DIABETES MELLITUS
  3. ASPENTER [Concomitant]
     Route: 048
     Dates: start: 200904
  4. PENTOXIFYLLINE [Concomitant]
  5. CIPRINOL [Concomitant]
     Dates: start: 20130530

REACTIONS (4)
  - Renal failure acute [Not Recovered/Not Resolved]
  - Glomerulonephritis rapidly progressive [Not Recovered/Not Resolved]
  - Normochromic normocytic anaemia [Not Recovered/Not Resolved]
  - Dermatitis allergic [Unknown]
